FAERS Safety Report 18611999 (Version 2)
Quarter: 2021Q1

REPORT INFORMATION
  Report Type: Report from Study
  Country: None (occurrence: DE)
  Receive Date: 20201214
  Receipt Date: 20210117
  Transmission Date: 20210419
  Serious: Yes (Hospitalization)
  Sender: FDA-Public Use
  Company Number: DE-ABBVIE-20K-062-3687525-00

PATIENT
  Age: 65 Year
  Sex: Male
  Weight: 73 kg

DRUGS (38)
  1. AMLODIPIN 1A PHARMA GMBH [Concomitant]
     Active Substance: AMLODIPINE BESYLATE
     Indication: CARDIOVASCULAR DISORDER
     Dates: end: 20200603
  2. BACLOFEN DURA [Concomitant]
     Active Substance: BACLOFEN
     Dates: start: 20191104
  3. BACLOFEN DURA [Concomitant]
     Active Substance: BACLOFEN
  4. TOLPERISONE [Concomitant]
     Active Substance: TOLPERISONE
     Dates: start: 20191104
  5. OXYCODON COMP [Concomitant]
     Indication: PRODUCT USED FOR UNKNOWN INDICATION
  6. IBUPROFEN. [Concomitant]
     Active Substance: IBUPROFEN
     Indication: PRODUCT USED FOR UNKNOWN INDICATION
  7. OMEPRAZOL ABZ [Concomitant]
     Active Substance: OMEPRAZOLE
     Indication: PRODUCT USED FOR UNKNOWN INDICATION
  8. NICORETTE [Concomitant]
     Active Substance: NICOTINE
     Indication: PRODUCT USED FOR UNKNOWN INDICATION
     Dates: start: 20180904
  9. MAVIRET [Suspect]
     Active Substance: GLECAPREVIR\PIBRENTASVIR
     Indication: CHRONIC HEPATITIS C
     Dosage: 100 MG GLECAPREVIR/40 MG PIBRENTASVIR TABLETS, 3 TABLETS ONCE DAILY
     Route: 048
     Dates: start: 20180809, end: 20181003
  10. MIRTAZAPIN [Concomitant]
     Active Substance: MIRTAZAPINE
     Indication: PRODUCT USED FOR UNKNOWN INDICATION
     Dates: end: 20200603
  11. OXYCODON COMP [Concomitant]
     Dates: start: 20180824
  12. FORMOTEROL AL [Concomitant]
     Indication: PRODUCT USED FOR UNKNOWN INDICATION
  13. METOCLOPRAMIDE. [Concomitant]
     Active Substance: METOCLOPRAMIDE
     Indication: HEPATITIS C
     Dates: start: 20180824
  14. TORASEMID [Concomitant]
     Active Substance: TORSEMIDE
     Indication: CARDIOVASCULAR DISORDER
     Dates: end: 20201123
  15. EMTRICITABIN TENOFOVIR [Concomitant]
     Active Substance: EMTRICITABINE\TENOFOVIR
     Indication: HIV INFECTION
     Route: 048
     Dates: start: 20171117
  16. METOPROLOLSUCCINAT AAA [Concomitant]
     Indication: CARDIOVASCULAR DISORDER
     Dates: end: 20200603
  17. GABAPENTIN CT [Concomitant]
     Indication: PRODUCT USED FOR UNKNOWN INDICATION
     Dates: end: 20200603
  18. PRAMIPEXOL [Concomitant]
     Active Substance: PRAMIPEXOLE
     Dates: start: 20191104, end: 20201123
  19. IBUPROFEN. [Concomitant]
     Active Substance: IBUPROFEN
  20. EMTRICITABINA [Concomitant]
     Active Substance: EMTRICITABINE
     Indication: HIV INFECTION
  21. ISENTRESS [Concomitant]
     Active Substance: RALTEGRAVIR POTASSIUM
     Indication: HIV INFECTION
     Route: 048
     Dates: start: 20171117
  22. TOLPERISONE [Concomitant]
     Active Substance: TOLPERISONE
  23. OXYCODON COMP [Concomitant]
     Dosage: 10/5 MG
  24. BERODUAL N [Concomitant]
     Active Substance: FENOTEROL HYDROBROMIDE\IPRATROPIUM BROMIDE
     Indication: PRODUCT USED FOR UNKNOWN INDICATION
  25. BERODUAL N [Concomitant]
     Active Substance: FENOTEROL HYDROBROMIDE\IPRATROPIUM BROMIDE
  26. ACETYLSALICYLIC ACID [Concomitant]
     Active Substance: ASPIRIN
     Indication: CARDIOVASCULAR DISORDER
  27. RAMIPRIL. [Concomitant]
     Active Substance: RAMIPRIL
     Indication: CARDIOVASCULAR DISORDER
     Dates: end: 20200603
  28. BACLOFEN DURA [Concomitant]
     Active Substance: BACLOFEN
     Indication: PRODUCT USED FOR UNKNOWN INDICATION
     Dates: end: 20191104
  29. PRAMIPEXOL [Concomitant]
     Active Substance: PRAMIPEXOLE
     Indication: PRODUCT USED FOR UNKNOWN INDICATION
     Dates: end: 20191104
  30. ZOPICLON [Concomitant]
     Active Substance: ZOPICLONE
  31. ACTIQ [Concomitant]
     Active Substance: FENTANYL CITRATE
  32. PREGABALIN 1A PHARMA [Concomitant]
     Active Substance: PREGABALIN
     Indication: PRODUCT USED FOR UNKNOWN INDICATION
     Dates: end: 20200603
  33. TOLPERISONE [Concomitant]
     Active Substance: TOLPERISONE
     Indication: PRODUCT USED FOR UNKNOWN INDICATION
     Dates: end: 20191104
  34. CLOPIDOGREL [Concomitant]
     Active Substance: CLOPIDOGREL BISULFATE
     Indication: CARDIOVASCULAR DISORDER
  35. BIFITERAL [Concomitant]
     Active Substance: LACTULOSE
     Indication: PRODUCT USED FOR UNKNOWN INDICATION
  36. ZOPICLON [Concomitant]
     Active Substance: ZOPICLONE
     Indication: PRODUCT USED FOR UNKNOWN INDICATION
  37. ACTIQ [Concomitant]
     Active Substance: FENTANYL CITRATE
     Indication: PRODUCT USED FOR UNKNOWN INDICATION
  38. TENOFOVIR [Concomitant]
     Active Substance: TENOFOVIR
     Indication: HIV INFECTION

REACTIONS (17)
  - Acute myocardial infarction [Recovering/Resolving]
  - Troponin T increased [Unknown]
  - Epicondylitis [Unknown]
  - Flank pain [Unknown]
  - Chest pain [Unknown]
  - Monoparesis [Unknown]
  - Fall [Unknown]
  - Axillary pain [Unknown]
  - Device issue [Unknown]
  - Pain [Unknown]
  - Affect lability [Unknown]
  - Cerebral infarction [Recovering/Resolving]
  - Cerebral artery thrombosis [Recovered/Resolved]
  - Multimorbidity [Unknown]
  - Oxygen saturation abnormal [Unknown]
  - Sputum discoloured [Unknown]
  - Chest pain [Unknown]

NARRATIVE: CASE EVENT DATE: 20191022
